FAERS Safety Report 11373913 (Version 1)
Quarter: 2015Q3

REPORT INFORMATION
  Report Type: Spontaneous
  Country: US (occurrence: US)
  Receive Date: 20150811
  Receipt Date: 20150811
  Transmission Date: 20151125
  Serious: No
  Sender: FDA-Public Use
  Company Number: US-ELI_LILLY_AND_COMPANY-US201110005118

PATIENT
  Age: 64 Year
  Sex: Female
  Weight: 89.8 kg

DRUGS (2)
  1. ADCIRCA [Suspect]
     Active Substance: TADALAFIL
     Dosage: UNK, UNKNOWN
  2. TRACLEER [Concomitant]
     Active Substance: BOSENTAN

REACTIONS (1)
  - Fluid retention [Recovered/Resolved]
